FAERS Safety Report 7174397-6 (Version None)
Quarter: 2010Q4

REPORT INFORMATION
  Report Type: 
  Country: None (occurrence: None)
  Receive Date: 20101219
  Receipt Date: 20100326
  Transmission Date: 20110411
  Serious: No
  Sender: FDA-Public Use
  Company Number: US-AMGEN-KDL402205

PATIENT

DRUGS (16)
  1. ENBREL [Suspect]
     Indication: PRODUCT USED FOR UNKNOWN INDICATION
     Dosage: 50 MG, QWK
     Route: 058
  2. IBANDRONATE SODIUM [Concomitant]
     Dosage: 2.5 MG, UNK
  3. SIMVASTATIN [Concomitant]
     Dosage: 5 MG, UNK
  4. FUROSEMIDE [Concomitant]
     Dosage: 20 MG, UNK
  5. METHOTREXATE [Concomitant]
     Dosage: 2.5 MG, UNK
  6. PREGABALIN [Concomitant]
     Dosage: 25 MG, UNK
  7. ACETAMINOPHEN AND HYDROCODONE BITARTRATE [Concomitant]
     Dosage: 500 MG, UNK
  8. FOLIC ACID [Concomitant]
     Dosage: 1 MG, UNK
  9. ALBUTEROL SULFATE [Concomitant]
     Dosage: .083 %, UNK
  10. FLUTICASONE/SALMETEROL [Concomitant]
     Dosage: UNK UNK, UNK
  11. OMEPRAZOLE [Concomitant]
     Dosage: 10 MG, UNK
  12. TIOTROPIUM BROMIDE [Concomitant]
     Dosage: UNK UNK, UNK
  13. CYCLOBENZAPRINE HCL [Concomitant]
     Dosage: 5 MG, UNK
  14. CALCIUM WITH VITAMIN D [Concomitant]
     Dosage: UNK UNK, UNK
  15. ETODOLAC [Concomitant]
     Dosage: 200 MG, UNK
  16. POTASSIUM [Concomitant]
     Dosage: 25 MEQ, UNK

REACTIONS (1)
  - PRODUCTIVE COUGH [None]
